FAERS Safety Report 7508132-6 (Version None)
Quarter: 2011Q2

REPORT INFORMATION
  Report Type: 
  Country: None (occurrence: None)
  Receive Date: 20110527
  Receipt Date: 20110523
  Transmission Date: 20111010
  Serious: Yes (Death, Hospitalization)
  Sender: FDA-Public Use
  Company Number: JP-ELI_LILLY_AND_COMPANY-JP201103003455

PATIENT
  Age: 79 Year
  Sex: Female

DRUGS (3)
  1. AMLODIPINE [Concomitant]
     Indication: HYPERTENSION
     Dosage: 5 MG, QD
     Route: 048
  2. GEMZAR [Suspect]
     Indication: BREAST CANCER
     Dosage: 800 MG/M2, OTHER
     Route: 042
     Dates: start: 20100902, end: 20110309
  3. NOLVADEX [Concomitant]
     Dosage: 20 MG, QD
     Route: 048

REACTIONS (2)
  - SUBARACHNOID HAEMORRHAGE [None]
  - DEATH [None]
